FAERS Safety Report 6820092-X (Version None)
Quarter: 2010Q3

REPORT INFORMATION
  Report Type: 
  Country: None (occurrence: None)
  Receive Date: 20100707
  Receipt Date: 20100706
  Transmission Date: 20110219
  Serious: Yes (Life-Threatening)
  Sender: FDA-Public Use
  Company Number: D0067626A

PATIENT
  Sex: Female
  Weight: 90 kg

DRUGS (7)
  1. VIANI [Suspect]
     Indication: ASTHMA
     Dosage: 1PUFF PER DAY
     Route: 055
  2. NEBIVOLOL [Concomitant]
     Dosage: 5MG IN THE MORNING
     Route: 065
  3. REMINYL [Concomitant]
     Indication: DEMENTIA
     Dosage: 16MG IN THE MORNING
     Route: 065
  4. MIRTAZAPINE [Concomitant]
     Indication: DEPRESSION
     Dosage: 30MG AT NIGHT
     Route: 065
  5. ASPIRIN [Concomitant]
     Dosage: 160MG PER DAY
     Route: 065
  6. SIMVASTATIN [Concomitant]
     Dosage: 16MG AT NIGHT
     Route: 065
  7. VIANI [Concomitant]
     Route: 055

REACTIONS (5)
  - BRONCHOSPASM [None]
  - BURNING SENSATION [None]
  - COUGH [None]
  - GLOSSODYNIA [None]
  - TONGUE DISORDER [None]
